FAERS Safety Report 17635873 (Version 2)
Quarter: 2021Q1

REPORT INFORMATION
  Report Type: Spontaneous
  Country: GB (occurrence: GB)
  Receive Date: 20200406
  Receipt Date: 20210330
  Transmission Date: 20210419
  Serious: Yes (Other)
  Sender: FDA-Public Use
  Company Number: GB-AUROBINDO-AUR-APL-2020-016460

PATIENT
  Age: 52 Year
  Sex: Female

DRUGS (7)
  1. LAMOTRIGINE. [Suspect]
     Active Substance: LAMOTRIGINE
     Indication: EPILEPSY
     Dosage: 225 MILLIGRAM, ONCE A DAY
     Route: 065
  2. LAMOTRIGINE. [Suspect]
     Active Substance: LAMOTRIGINE
     Dosage: 200 MILLIGRAM, ONCE A DAY
     Route: 065
  3. LAMOTRIGINE. [Suspect]
     Active Substance: LAMOTRIGINE
     Dosage: 200 MILLIGRAM, ONCE A DAY
     Route: 065
  4. SOFRADEX [Suspect]
     Active Substance: DEXAMETHASONE\FRAMYCETIN SULFATE\GRAMICIDIN
     Indication: EAR DISCOMFORT
     Dosage: UNK
     Route: 065
     Dates: end: 202003
  5. CLOBAZAM. [Concomitant]
     Active Substance: CLOBAZAM
     Indication: EPILEPSY
     Dosage: 20 MILLIGRAM, ONCE A DAY
     Route: 065
  6. ZONEGRAN [Concomitant]
     Active Substance: ZONISAMIDE
     Indication: EPILEPSY
     Dosage: 500 MILLIGRAM, ONCE A DAY
     Route: 065
  7. SOFRADEX [Suspect]
     Active Substance: DEXAMETHASONE\FRAMYCETIN SULFATE\GRAMICIDIN
     Indication: EAR DISCOMFORT
     Dosage: UNK
     Route: 065

REACTIONS (7)
  - Eye irritation [Unknown]
  - Seizure [Unknown]
  - Fatigue [Unknown]
  - Alopecia [Unknown]
  - Eyelid pain [Recovered/Resolved]
  - Erythema of eyelid [Recovered/Resolved]
  - Eyelid disorder [Recovered/Resolved]

NARRATIVE: CASE EVENT DATE: 20200219
